FAERS Safety Report 5106626-4 (Version None)
Quarter: 2006Q3

REPORT INFORMATION
  Report Type: 
  Country: None (occurrence: None)
  Receive Date: 20060918
  Receipt Date: 20060907
  Transmission Date: 20061208
  Serious: Yes (Other)
  Sender: FDA-Public Use
  Company Number: TH-ROCHE-462227

PATIENT

DRUGS (2)
  1. XELODA [Suspect]
     Indication: GASTRIC CANCER
     Dosage: TWO WEEKS ON AND ONE WEEK OFF PATIENT RECIEVED SIX CYCLES
     Route: 048
     Dates: start: 20060615, end: 20060615
  2. TAXOTERE [Suspect]
     Indication: GASTRIC CANCER
     Dosage: PATIENT RECEIVED SIX CYCLES
     Route: 042
     Dates: start: 20060615, end: 20060615

REACTIONS (2)
  - BLINDNESS UNILATERAL [None]
  - OPTIC NEURITIS [None]
